FAERS Safety Report 7645649-8 (Version None)
Quarter: 2011Q3

REPORT INFORMATION
  Report Type: 
  Country: None (occurrence: None)
  Receive Date: 20110729
  Receipt Date: 20110727
  Transmission Date: 20111222
  Serious: No
  Sender: FDA-Public Use
  Company Number: US-PFIZER INC-2011171241

PATIENT
  Sex: Female
  Weight: 73 kg

DRUGS (4)
  1. PRISTIQ [Suspect]
     Indication: DEPRESSION
     Dosage: 100 MG,DAILY
     Route: 048
  2. LEVOTHYROXINE SODIUM [Concomitant]
     Indication: THYROID DISORDER
     Dosage: 100 UG, DAILY
     Route: 048
  3. PRISTIQ [Suspect]
     Dosage: 50 MG, DAILY
     Route: 048
     Dates: start: 20110701
  4. TRAZODONE HCL [Suspect]
     Indication: SLEEP DISORDER
     Dosage: ONE TO TWO TIMES A DAY
     Route: 048
     Dates: start: 20110701, end: 20110701

REACTIONS (1)
  - HYPOTENSION [None]
